FAERS Safety Report 8358111-4 (Version None)
Quarter: 2012Q2

REPORT INFORMATION
  Report Type: 
  Country: None (occurrence: None)
  Receive Date: 20120514
  Receipt Date: 20120504
  Transmission Date: 20120825
  Serious: Yes (Death, Hospitalization)
  Sender: FDA-Public Use
  Company Number: US-GLAXOSMITHKLINE-A0744015A

PATIENT
  Sex: Male
  Weight: 84.1 kg

DRUGS (1)
  1. AVANDIA [Suspect]
     Indication: TYPE 2 DIABETES MELLITUS
     Dosage: 4MG PER DAY
     Route: 048
     Dates: end: 20040624

REACTIONS (11)
  - RENAL FAILURE [None]
  - WEIGHT INCREASED [None]
  - CARDIAC FAILURE [None]
  - LOSS OF CONSCIOUSNESS [None]
  - SEPSIS [None]
  - FLUID RETENTION [None]
  - BLOOD GLUCOSE DECREASED [None]
  - CONVULSION [None]
  - ACUTE CORONARY SYNDROME [None]
  - HIP FRACTURE [None]
  - PULMONARY EMBOLISM [None]
